FAERS Safety Report 23014280 (Version 1)
Quarter: 2023Q4

REPORT INFORMATION
  Report Type: Report from Study
  Country: CN (occurrence: CN)
  Receive Date: 20231002
  Receipt Date: 20231002
  Transmission Date: 20240109
  Serious: Yes (Other)
  Sender: FDA-Public Use
  Company Number: CN-002147023-NVSC2023CN210143

PATIENT
  Age: 49 Year
  Sex: Male
  Weight: 96 kg

DRUGS (2)
  1. COSENTYX [Suspect]
     Active Substance: SECUKINUMAB
     Indication: Ankylosing spondylitis
     Dosage: 150 MG (UNDER THE SKIN, USUALLY ADMINISTERED BY INJECTION)
     Route: 058
     Dates: start: 202202, end: 202303
  2. COSENTYX [Suspect]
     Active Substance: SECUKINUMAB
     Dosage: 150 MG (UNDER THE SKIN, USUALLY ADMINISTERED BY INJECTION)
     Route: 058
     Dates: start: 202309

REACTIONS (3)
  - Pulmonary tuberculosis [Recovering/Resolving]
  - Movement disorder [Unknown]
  - Limb discomfort [Unknown]

NARRATIVE: CASE EVENT DATE: 20230301
